FAERS Safety Report 9165696 (Version 1)
Quarter: 2013Q1

REPORT INFORMATION
  Report Type: Spontaneous
  Country: US (occurrence: None)
  Receive Date: 20130314
  Receipt Date: 20130314
  Transmission Date: 20140127
  Serious: No
  Sender: FDA-Public Use
  Company Number: None

PATIENT
  Age: 86 Year
  Sex: Male
  Weight: 68.95 kg

DRUGS (1)
  1. DEXAMETHASONE [Suspect]
     Dosage: FIVE TAB WEEKLY, ONCE WEEKLY
     Dates: start: 2010, end: 2011

REACTIONS (11)
  - Muscle spasms [None]
  - Vision blurred [None]
  - Abdominal distension [None]
  - Abdominal pain upper [None]
  - Dizziness [None]
  - Paraesthesia [None]
  - Hypoaesthesia [None]
  - Fatigue [None]
  - Asthenia [None]
  - Fatigue [None]
  - Blood urine present [None]
